FAERS Safety Report 6998769-5 (Version None)
Quarter: 2010Q3

REPORT INFORMATION
  Report Type: 
  Country: None (occurrence: None)
  Receive Date: 20100920
  Receipt Date: 20100517
  Transmission Date: 20110219
  Serious: No
  Sender: FDA-Public Use
  Company Number: US-ASTRAZENECA-2009UW06463

PATIENT
  Age: 56 Year
  Sex: Female
  Weight: 59 kg

DRUGS (16)
  1. SEROQUEL [Suspect]
     Indication: DEPRESSION
     Route: 048
  2. SEROQUEL [Suspect]
     Indication: ANXIETY
     Route: 048
  3. SEROQUEL [Suspect]
     Dosage: CUT TABLET INTO 3/4 TABLETS AND THEN 1/2 TABLETS
     Route: 048
  4. SEROQUEL [Suspect]
     Dosage: CUT TABLET INTO 3/4 TABLETS AND THEN 1/2 TABLETS
     Route: 048
  5. SEROQUEL [Suspect]
     Route: 048
     Dates: start: 20070101, end: 20080101
  6. SEROQUEL [Suspect]
     Route: 048
     Dates: start: 20070101, end: 20080101
  7. SEROQUEL [Suspect]
     Route: 048
     Dates: start: 20090901
  8. SEROQUEL [Suspect]
     Route: 048
     Dates: start: 20090901
  9. KLONOPIN [Concomitant]
  10. ATENOLOL [Concomitant]
  11. COZAAR [Concomitant]
  12. TRAMADOL [Concomitant]
  13. ZOLOFT [Concomitant]
  14. VICODIN [Concomitant]
  15. CITALOPRAM HYDROBROMIDE [Concomitant]
  16. SKELAXIN [Concomitant]

REACTIONS (13)
  - ANXIETY [None]
  - BLOOD PRESSURE DECREASED [None]
  - BLOOD PRESSURE INCREASED [None]
  - CONSTIPATION [None]
  - CRYING [None]
  - DEPRESSION [None]
  - DRY MOUTH [None]
  - FATIGUE [None]
  - HEADACHE [None]
  - HYPOAESTHESIA [None]
  - MENTAL IMPAIRMENT [None]
  - NERVOUSNESS [None]
  - SOMNOLENCE [None]
